FAERS Safety Report 13361347 (Version 1)
Quarter: 2017Q1

REPORT INFORMATION
  Report Type: Spontaneous
  Country: GB (occurrence: GB)
  Receive Date: 20170323
  Receipt Date: 20170323
  Transmission Date: 20170429
  Serious: Yes (Hospitalization)
  Sender: FDA-Public Use
  Company Number: GB-ASTRAZENECA-2017SE28924

PATIENT
  Age: 45 Year
  Sex: Female

DRUGS (5)
  1. METFORMIN HYDROCHLORIDE. [Concomitant]
     Active Substance: METFORMIN HYDROCHLORIDE
  2. NOVORAPID [Concomitant]
     Active Substance: INSULIN ASPART
  3. DAPAGLIFLOZIN [Suspect]
     Active Substance: DAPAGLIFLOZIN
     Indication: TYPE 2 DIABETES MELLITUS
     Route: 048
  4. TRULICITY [Concomitant]
     Active Substance: DULAGLUTIDE
  5. LEVEMIR [Concomitant]
     Active Substance: INSULIN DETEMIR

REACTIONS (4)
  - Diabetic ketoacidosis [Unknown]
  - Ketosis [Unknown]
  - Abnormal loss of weight [Unknown]
  - Malaise [Unknown]

NARRATIVE: CASE EVENT DATE: 20170308
